FAERS Safety Report 5558579-2 (Version None)
Quarter: 2007Q4

REPORT INFORMATION
  Report Type: 
  Country: None (occurrence: None)
  Receive Date: 20071214
  Receipt Date: 20070902
  Transmission Date: 20080405
  Serious: No
  Sender: FDA-Public Use
  Company Number: US-ABBOTT-07P-163-0415749-00

PATIENT
  Sex: Female
  Weight: 46.308 kg

DRUGS (1)
  1. HUMIRA [Suspect]
     Indication: CROHN'S DISEASE
     Route: 058
     Dates: start: 20070803

REACTIONS (2)
  - INJECTION SITE MASS [None]
  - INJECTION SITE PRURITUS [None]
